FAERS Safety Report 21023660 (Version 1)
Quarter: 2022Q2

REPORT INFORMATION
  Report Type: Spontaneous
  Country: US (occurrence: US)
  Receive Date: 20220629
  Receipt Date: 20220629
  Transmission Date: 20220720
  Serious: Yes (Other)
  Sender: FDA-Public Use
  Company Number: US-PROCTER_AND_GAMBLE-GS22058186

PATIENT

DRUGS (3)
  1. CREST GUM DETOXIFY [Suspect]
     Active Substance: STANNOUS FLUORIDE
     Dosage: UNK
     Route: 002
  2. PRO HEALTH MULTI-PROTECTION FLUORIDE RINSE [Concomitant]
  3. TOOTHBRUSH [Concomitant]

REACTIONS (2)
  - Tooth extraction [Unknown]
  - Expired product administered [Unknown]
